FAERS Safety Report 9301160 (Version 1)
Quarter: 2013Q2

REPORT INFORMATION
  Report Type: Spontaneous
  Country: US (occurrence: None)
  Receive Date: 20130520
  Receipt Date: 20130520
  Transmission Date: 20140414
  Serious: Yes (Other)
  Sender: FDA-Public Use
  Company Number: None

PATIENT
  Age: 38 Year
  Sex: Male
  Weight: 116.12 kg

DRUGS (6)
  1. LORATADINE [Suspect]
     Indication: SEASONAL ALLERGY
     Dosage: 1 PILL  1PER 24 HRS PO
     Route: 048
     Dates: start: 20130513, end: 20130517
  2. WALGREENS COLD/FLU RELIEF LIQUID CAPS [Concomitant]
  3. ACETAMINOPHEN [Concomitant]
  4. DEXTROMETHORPHAN [Concomitant]
  5. PHENYLEPHRINE [Concomitant]
  6. DOXYLAMINE SUCCINATE [Concomitant]

REACTIONS (9)
  - Agitation [None]
  - Confusional state [None]
  - Anxiety [None]
  - Amnesia [None]
  - Depression [None]
  - Irritability [None]
  - Memory impairment [None]
  - Disturbance in attention [None]
  - Sleep disorder [None]
